FAERS Safety Report 8015960-X (Version None)
Quarter: 2011Q4

REPORT INFORMATION
  Report Type: 
  Country: None (occurrence: None)
  Receive Date: 20111230
  Receipt Date: 20111219
  Transmission Date: 20120403
  Serious: Yes (Hospitalization)
  Sender: FDA-Public Use
  Company Number: CA-JNJFOC-20111210220

PATIENT
  Sex: Male
  Weight: 95 kg

DRUGS (12)
  1. CALCIUM ACETATE [Concomitant]
     Route: 065
  2. PREDNISONE [Concomitant]
     Route: 048
  3. CORGARD [Concomitant]
     Route: 048
  4. ALL OTHER THERAPEUTICS [Concomitant]
     Route: 065
  5. PANTOPRAZOLE SODIUM [Concomitant]
     Route: 065
  6. MULTI-VITAMINS [Concomitant]
     Route: 065
  7. ACTONEL [Concomitant]
     Route: 065
  8. IMDUR [Concomitant]
     Route: 048
  9. REMICADE [Suspect]
     Indication: CROHN'S DISEASE
     Route: 042
     Dates: start: 20070101
  10. FOLIC ACID [Concomitant]
     Route: 065
  11. SANDOSTATIN [Concomitant]
     Route: 065
  12. FRAGMIN [Concomitant]
     Dosage: 10,000 UNITS
     Route: 058

REACTIONS (1)
  - SYSTEMIC CANDIDA [None]
